FAERS Safety Report 13629659 (Version 1)
Quarter: 2017Q2

REPORT INFORMATION
  Report Type: Spontaneous
  Country: JP (occurrence: JP)
  Receive Date: 20170608
  Receipt Date: 20170608
  Transmission Date: 20170830
  Serious: Yes (Other)
  Sender: FDA-Public Use
  Company Number: JP-PFIZER INC-2017208625

PATIENT
  Age: 7 Decade
  Sex: Male

DRUGS (1)
  1. SUTENT [Suspect]
     Active Substance: SUNITINIB MALATE
     Indication: RENAL CELL CARCINOMA
     Dosage: UNK
     Route: 048
     Dates: start: 201610

REACTIONS (5)
  - Internal haemorrhage [Unknown]
  - Oedema [Unknown]
  - Palmar-plantar erythrodysaesthesia syndrome [Unknown]
  - Platelet count decreased [Unknown]
  - Neoplasm progression [Unknown]
